FAERS Safety Report 18163263 (Version 2)
Quarter: 2020Q4

REPORT INFORMATION
  Report Type: Spontaneous
  Country: US (occurrence: US)
  Receive Date: 20200818
  Receipt Date: 20201118
  Transmission Date: 20210113
  Serious: No
  Sender: FDA-Public Use
  Company Number: US-IMMUNOMEDICS, INC.-2020IMMU000465

PATIENT
  Sex: Female
  Weight: 54.88 kg

DRUGS (1)
  1. TRODELVY [Suspect]
     Active Substance: SACITUZUMAB GOVITECAN-HZIY
     Indication: BREAST CANCER FEMALE
     Dosage: 275 MG DAY 1 AND DAY 8 EVERY 21 DAYS
     Route: 042
     Dates: start: 20200624, end: 20200624

REACTIONS (3)
  - Inflammation [Unknown]
  - Gait inability [Unknown]
  - Joint injury [Unknown]
